FAERS Safety Report 12202352 (Version 6)
Quarter: 2016Q3

REPORT INFORMATION
  Report Type: Report from Study
  Country: BR (occurrence: BR)
  Receive Date: 20160322
  Receipt Date: 20160711
  Transmission Date: 20161109
  Serious: Yes (Other)
  Sender: FDA-Public Use
  Company Number: PHHY2016BR037190

PATIENT
  Sex: Female
  Weight: 76 kg

DRUGS (3)
  1. ACLASTA [Suspect]
     Active Substance: ZOLEDRONIC ACID
     Indication: OSTEOPOROSIS
     Dosage: 1 DF, Q12MO
     Route: 042
     Dates: start: 20150520
  2. CALCIUM [Concomitant]
     Active Substance: CALCIUM
     Indication: PRODUCT USED FOR UNKNOWN INDICATION
     Dosage: UNK
     Route: 065
  3. ACLASTA [Suspect]
     Active Substance: ZOLEDRONIC ACID
     Dosage: 1 DF, Q12MO
     Route: 042
     Dates: start: 20160329

REACTIONS (12)
  - Intervertebral disc protrusion [Unknown]
  - Patient-device incompatibility [Unknown]
  - Spinal pain [Unknown]
  - Lower limb fracture [Unknown]
  - Inappropriate schedule of drug administration [Unknown]
  - Malaise [Unknown]
  - Fall [Unknown]
  - Influenza [Unknown]
  - Arthralgia [Recovering/Resolving]
  - Urinary tract infection [Unknown]
  - Visual impairment [Unknown]
  - Pain [Recovering/Resolving]
